FAERS Safety Report 23327429 (Version 1)
Quarter: 2023Q4

REPORT INFORMATION
  Report Type: Spontaneous
  Country: PT (occurrence: PT)
  Receive Date: 20231221
  Receipt Date: 20231221
  Transmission Date: 20240109
  Serious: Yes (Disabling)
  Sender: FDA-Public Use
  Company Number: None

PATIENT
  Age: 70 Year
  Sex: Male
  Weight: 82.4 kg

DRUGS (4)
  1. OXALIPLATIN [Suspect]
     Active Substance: OXALIPLATIN
     Indication: Colon neoplasm
     Dosage: 48,43MG/M2 EVERY 2 WEEKS, DURING 12 TREATMENT CYCLES
     Route: 042
     Dates: start: 20231206
  2. FLUOROURACIL [Concomitant]
     Active Substance: FLUOROURACIL
     Indication: Product used for unknown indication
  3. BEVACIZUMAB [Concomitant]
     Active Substance: BEVACIZUMAB
     Indication: Product used for unknown indication
  4. IRINOTECAN [Concomitant]
     Active Substance: IRINOTECAN
     Indication: Product used for unknown indication

REACTIONS (1)
  - Tremor [Recovered/Resolved]

NARRATIVE: CASE EVENT DATE: 20231206
